FAERS Safety Report 4598089-2 (Version None)
Quarter: 2005Q1

REPORT INFORMATION
  Report Type: 
  Country: None (occurrence: None)
  Receive Date: 20050304
  Receipt Date: 20050221
  Transmission Date: 20050727
  Serious: Yes (Hospitalization)
  Sender: FDA-Public Use
  Company Number: DE-ABBOTT-05P-062-0292053-00

PATIENT
  Sex: Male
  Weight: 77 kg

DRUGS (3)
  1. KALETRA [Suspect]
     Indication: HIV INFECTION
     Route: 048
     Dates: start: 20031204, end: 20041221
  2. ZIDOVUDINE [Concomitant]
     Indication: HIV INFECTION
     Route: 042
     Dates: start: 20031204, end: 20041221
  3. ZIAGEN LOSUNG [Concomitant]
     Indication: HIV INFECTION
     Route: 048
     Dates: start: 20031204, end: 20041221

REACTIONS (2)
  - DIARRHOEA [None]
  - ELECTROLYTE IMBALANCE [None]
